FAERS Safety Report 7543981-X (Version None)
Quarter: 2011Q2

REPORT INFORMATION
  Report Type: 
  Country: None (occurrence: None)
  Receive Date: 20110613
  Receipt Date: 20041215
  Transmission Date: 20111010
  Serious: Yes (Other)
  Sender: FDA-Public Use
  Company Number: PHHO2004JP18047

PATIENT
  Sex: Male
  Weight: 53 kg

DRUGS (3)
  1. DIOVAN [Suspect]
     Indication: HYPERTENSION
     Dosage: 80 MG, QD
     Route: 048
     Dates: start: 20030918, end: 20040911
  2. BUFFERIN [Concomitant]
  3. GASMOTIN [Concomitant]

REACTIONS (2)
  - CONCOMITANT DISEASE PROGRESSION [None]
  - DEMENTIA [None]
